FAERS Safety Report 7621625-6 (Version None)
Quarter: 2011Q3

REPORT INFORMATION
  Report Type: 
  Country: None (occurrence: None)
  Receive Date: 20110719
  Receipt Date: 20110712
  Transmission Date: 20111222
  Serious: Yes (Hospitalization)
  Sender: FDA-Public Use
  Company Number: US-GENENTECH-321374

PATIENT
  Sex: Female

DRUGS (4)
  1. ANTIANXIETY AGENT [Concomitant]
     Indication: ANXIETY
  2. RITUXAN [Suspect]
     Indication: PSORIATIC ARTHROPATHY
  3. LASIX [Concomitant]
     Indication: PRODUCT USED FOR UNKNOWN INDICATION
  4. BLOOD PRESSURE MEDICATION NOS [Concomitant]
     Indication: PRODUCT USED FOR UNKNOWN INDICATION

REACTIONS (2)
  - CARDIAC FAILURE CONGESTIVE [None]
  - OFF LABEL USE [None]
